FAERS Safety Report 6712868-4 (Version None)
Quarter: 2010Q2

REPORT INFORMATION
  Report Type: 
  Country: None (occurrence: None)
  Receive Date: 20100505
  Receipt Date: 20100505
  Transmission Date: 20101027
  Serious: Yes (Death)
  Sender: FDA-Public Use
  Company Number: None

PATIENT
  Sex: Male
  Weight: 88.4514 kg

DRUGS (1)
  1. BUPROPION HCL [Suspect]
     Indication: DEPRESSION
     Dosage: 75 MG TWICE DAILY PO
     Route: 048
     Dates: start: 20100401, end: 20100401

REACTIONS (11)
  - AGITATION [None]
  - CHILLS [None]
  - COMPLETED SUICIDE [None]
  - CONFUSIONAL STATE [None]
  - GUN SHOT WOUND [None]
  - HALLUCINATION [None]
  - HYPERHIDROSIS [None]
  - PALLOR [None]
  - RESTLESSNESS [None]
  - SPEECH DISORDER [None]
  - TREMOR [None]
